FAERS Safety Report 10760893 (Version 2)
Quarter: 2015Q1

REPORT INFORMATION
  Report Type: Spontaneous
  Country: JP (occurrence: JP)
  Receive Date: 20150204
  Receipt Date: 20150204
  Transmission Date: 20150721
  Serious: Yes (Other)
  Sender: FDA-Public Use
  Company Number: JP-JNJFOC-20150117382

PATIENT

DRUGS (2)
  1. DUROTEP MT [Suspect]
     Active Substance: FENTANYL
     Indication: CANCER PAIN
     Route: 062
  2. FENTANYL. [Suspect]
     Active Substance: FENTANYL
     Indication: CANCER PAIN
     Route: 042

REACTIONS (8)
  - Skin disorder [Unknown]
  - Vomiting [Unknown]
  - Constipation [Unknown]
  - Respiratory depression [Unknown]
  - Hepatic function abnormal [Unknown]
  - Delirium [Unknown]
  - Somnolence [Unknown]
  - Nausea [Unknown]
